FAERS Safety Report 7217935-7 (Version None)
Quarter: 2011Q1

REPORT INFORMATION
  Report Type: 
  Country: None (occurrence: None)
  Receive Date: 20110110
  Receipt Date: 20101221
  Transmission Date: 20110831
  Serious: Yes (Hospitalization, Congenital Anomaly)
  Sender: FDA-Public Use
  Company Number: A0739969A

PATIENT
  Sex: Male
  Weight: 2.4 kg

DRUGS (7)
  1. ELAVIL [Concomitant]
     Dates: end: 20030309
  2. PAXIL [Suspect]
     Indication: DEPRESSION
     Dosage: 40MG PER DAY
     Dates: end: 20040501
  3. HUMULIN R [Concomitant]
  4. TYLENOL [Concomitant]
  5. GLUCOPHAGE [Concomitant]
     Dates: end: 20030301
  6. RESTORIL [Concomitant]
  7. TAGAMET [Concomitant]

REACTIONS (5)
  - HEMIVERTEBRA [None]
  - DRUG EXPOSURE DURING PREGNANCY [None]
  - PATENT DUCTUS ARTERIOSUS [None]
  - CONGENITAL SCOLIOSIS [None]
  - PULMONARY MALFORMATION [None]
